FAERS Safety Report 8130921-8 (Version None)
Quarter: 2012Q1

REPORT INFORMATION
  Report Type: 
  Country: None (occurrence: None)
  Receive Date: 20120213
  Receipt Date: 20120207
  Transmission Date: 20120608
  Serious: No
  Sender: FDA-Public Use
  Company Number: US-PFIZER INC-2012035664

PATIENT
  Sex: Female
  Weight: 81.633 kg

DRUGS (11)
  1. VITAMIN D [Concomitant]
     Dosage: UNK
  2. DIOVAN [Concomitant]
     Indication: HYPERTENSION
     Dosage: 320 MG, DAILY
  3. CARVEDILOL [Concomitant]
     Indication: HYPERTENSION
     Dosage: 12.5 MG, 2X/DAY
  4. CARVEDILOL [Concomitant]
     Indication: CARDIAC DISORDER
  5. MULTI-VITAMINS [Concomitant]
     Dosage: UNK
  6. HYDROCHLOROTHIAZIDE [Concomitant]
     Indication: DIURETIC THERAPY
     Dosage: 25 MG, DAILY
  7. HYDROCHLOROTHIAZIDE [Concomitant]
     Indication: HYPERTENSION
  8. SIMVASTATIN [Concomitant]
     Indication: BLOOD CHOLESTEROL ABNORMAL
     Dosage: 40 MG, DAILY
  9. LYRICA [Suspect]
     Indication: NEUROPATHY PERIPHERAL
     Dosage: 75 MG THREE CAPSULES DAILY
     Route: 048
     Dates: start: 20111101
  10. WARFARIN [Concomitant]
     Indication: ATRIAL FIBRILLATION
     Dosage: 5 MG THREE TIMES A WEEK AND 2.5 MG FOUR TIMES A WEEK
  11. POTASSIUM CHLORIDE [Concomitant]
     Dosage: 10 MEQ, DAILY

REACTIONS (4)
  - SLEEP DISORDER [None]
  - DRUG INEFFECTIVE [None]
  - BLADDER DISORDER [None]
  - THERAPEUTIC RESPONSE UNEXPECTED [None]
